FAERS Safety Report 23831159 (Version 1)
Quarter: 2024Q2

REPORT INFORMATION
  Report Type: Spontaneous
  Country: US (occurrence: None)
  Receive Date: 20240507
  Receipt Date: 20240507
  Transmission Date: 20240716
  Serious: Yes (Hospitalization)
  Sender: FDA-Public Use
  Company Number: None

PATIENT
  Age: 44 Year
  Sex: Female
  Weight: 93.6 kg

DRUGS (10)
  1. BALSALAZIDE [Suspect]
     Active Substance: BALSALAZIDE
     Indication: Colitis ulcerative
     Dosage: OTHER QUANTITY : 3 CAPSULE(S)?FREQUENCY : 3 TIMES A DAY?
     Route: 048
     Dates: start: 20240201, end: 20240410
  2. PREDNISONE [Concomitant]
     Active Substance: PREDNISONE
  3. XOLAIR [Concomitant]
     Active Substance: OMALIZUMAB
  4. FOLIC ACID [Concomitant]
     Active Substance: FOLIC ACID
  5. SULFAMETHOXAZOLE\TRIMETHOPRIM [Concomitant]
     Active Substance: SULFAMETHOXAZOLE\TRIMETHOPRIM
  6. LEVEMIR [Concomitant]
     Active Substance: INSULIN DETEMIR
  7. PANTOPRAZOLE [Concomitant]
     Active Substance: PANTOPRAZOLE
  8. BUPROPION [Concomitant]
     Active Substance: BUPROPION
  9. URO Probiotic [Concomitant]
  10. VITAMIN D [Concomitant]
     Active Substance: VITAMIN D NOS

REACTIONS (7)
  - Product communication issue [None]
  - Incorrect dose administered [None]
  - Dyspnoea exertional [None]
  - Gait disturbance [None]
  - Tinnitus [None]
  - Dizziness [None]
  - Autoimmune haemolytic anaemia [None]

NARRATIVE: CASE EVENT DATE: 20240408
